FAERS Safety Report 5162529-0 (Version None)
Quarter: 2006Q4

REPORT INFORMATION
  Report Type: 
  Country: None (occurrence: None)
  Receive Date: 20061121
  Receipt Date: 20061110
  Transmission Date: 20070319
  Serious: Yes (Hospitalization)
  Sender: FDA-Public Use
  Company Number: MEDI-0005127

PATIENT
  Age: 22 Month
  Sex: Male
  Weight: 16.7831 kg

DRUGS (1)
  1. SYNAGIS [Suspect]
     Indication: ANTIVIRAL PROPHYLAXIS
     Dosage: INTRAMUSCULAR
     Route: 030
     Dates: start: 20061024, end: 20061024

REACTIONS (9)
  - AURICULAR SWELLING [None]
  - DIARRHOEA [None]
  - EYE SWELLING [None]
  - LIP SWELLING [None]
  - LOCAL SWELLING [None]
  - SWELLING FACE [None]
  - URTICARIA [None]
  - VOMITING [None]
  - WEIGHT DECREASED [None]
